FAERS Safety Report 15594518 (Version 5)
Quarter: 2019Q2

REPORT INFORMATION
  Report Type: Report from Study
  Country: US (occurrence: US)
  Receive Date: 20181107
  Receipt Date: 20190621
  Transmission Date: 20190711
  Serious: Yes (Other)
  Sender: FDA-Public Use
  Company Number: PHEH2018US046367

PATIENT
  Sex: Male

DRUGS (2)
  1. COSENTYX [Suspect]
     Active Substance: SECUKINUMAB
     Indication: PSORIASIS
     Dosage: 300 MG, QMO
     Route: 058
  2. COSENTYX [Suspect]
     Active Substance: SECUKINUMAB
     Indication: PSORIATIC ARTHROPATHY

REACTIONS (9)
  - Cough [Unknown]
  - Back pain [Unknown]
  - Drug ineffective [Unknown]
  - Neuromyopathy [Unknown]
  - Immune system disorder [Unknown]
  - Pain in extremity [Unknown]
  - Malaise [Unknown]
  - Arthritis [Unknown]
  - Skin discolouration [Unknown]
